FAERS Safety Report 9832634 (Version 1)
Quarter: 2014Q1

REPORT INFORMATION
  Report Type: Spontaneous
  Country: US (occurrence: US)
  Receive Date: 20140121
  Receipt Date: 20140121
  Transmission Date: 20141002
  Serious: No
  Sender: FDA-Public Use
  Company Number: US-TEVA-456808USA

PATIENT
  Age: 16 Year
  Sex: Female
  Weight: 63.11 kg

DRUGS (2)
  1. NUVIGIL [Suspect]
     Indication: NARCOLEPSY
     Dates: start: 201401
  2. XYREM [Concomitant]
     Indication: NARCOLEPSY

REACTIONS (2)
  - Sensation of foreign body [Not Recovered/Not Resolved]
  - Pain in jaw [Not Recovered/Not Resolved]
